FAERS Safety Report 10486379 (Version 1)
Quarter: 2014Q4

REPORT INFORMATION
  Report Type: Spontaneous
  Country: US (occurrence: US)
  Receive Date: 20141001
  Receipt Date: 20141001
  Transmission Date: 20150528
  Serious: Yes (Hospitalization, Other)
  Sender: FDA-Public Use
  Company Number: US-SUN PHARMACEUTICAL INDUSTRIES LTD-2014SUN02186

PATIENT

DRUGS (10)
  1. CARBIDOPA + LEVODOPA ER TABS 25MG/100MG [Suspect]
     Active Substance: CARBIDOPA\LEVODOPA
     Indication: PARKINSON^S DISEASE
     Dosage: 450 MG, UNK
     Route: 065
  2. CARBIDOPA + LEVODOPA ER TABS 25MG/100MG [Suspect]
     Active Substance: CARBIDOPA\LEVODOPA
     Dosage: 650 MG A DAY
     Route: 065
  3. PRAMIPEXOLE [Concomitant]
     Active Substance: PRAMIPEXOLE
     Dosage: 0.25 MG, TID
     Route: 065
  4. CARBIDOPA + LEVODOPA ER TABS 25MG/100MG [Suspect]
     Active Substance: CARBIDOPA\LEVODOPA
     Dosage: 600 MG DAILY + 200 MG LEVODOPA CR AT BEDTIME
     Route: 065
  5. CLONAZEPAM. [Concomitant]
     Active Substance: CLONAZEPAM
     Indication: INSOMNIA
     Dosage: 0.5 MG, AT NIGHT
  6. CARBIDOPA + LEVODOPA ER TABS 25MG/100MG [Suspect]
     Active Substance: CARBIDOPA\LEVODOPA
     Dosage: 750 MG DAILY
     Route: 065
  7. PROVIGIL [Concomitant]
     Active Substance: MODAFINIL
     Dosage: 200 MG, BID
  8. ROPINIROLE. [Concomitant]
     Active Substance: ROPINIROLE
     Dosage: 2 MG, NIGHTLY DOSE
  9. CARBIDOPA + LEVODOPA ER TABS 25MG/100MG [Suspect]
     Active Substance: CARBIDOPA\LEVODOPA
     Dosage: 800 MG, DAILY
     Route: 065
  10. PROVIGIL [Concomitant]
     Active Substance: MODAFINIL
     Indication: SOMNOLENCE
     Dosage: 200 MG DAILY

REACTIONS (6)
  - Abnormal behaviour [Recovered/Resolved]
  - Compulsions [Recovered/Resolved]
  - Obsessive thoughts [Recovered/Resolved]
  - Dyskinesia [Recovered/Resolved]
  - Impulsive behaviour [Recovered/Resolved]
  - Somnolence [Recovered/Resolved]
